FAERS Safety Report 15804994 (Version 2)
Quarter: 2019Q1

REPORT INFORMATION
  Report Type: Spontaneous
  Country: US (occurrence: US)
  Receive Date: 20190110
  Receipt Date: 20190221
  Transmission Date: 20190417
  Serious: No
  Sender: FDA-Public Use
  Company Number: US-ASTRAZENECA-2019SE01168

PATIENT
  Age: 59 Year
  Sex: Female
  Weight: 122 kg

DRUGS (1)
  1. BYDUREON [Suspect]
     Active Substance: EXENATIDE
     Indication: TYPE 2 DIABETES MELLITUS
     Route: 058
     Dates: start: 201802

REACTIONS (8)
  - Product packaging quantity issue [Unknown]
  - Abdominal distension [Recovered/Resolved]
  - Pain [Unknown]
  - Eructation [Recovered/Resolved]
  - Hot flush [Not Recovered/Not Resolved]
  - Wrong technique in device usage process [Not Recovered/Not Resolved]
  - Dyspnoea [Recovered/Resolved]
  - Device leakage [Unknown]

NARRATIVE: CASE EVENT DATE: 2018
